FAERS Safety Report 9813706 (Version 1)
Quarter: 2014Q1

REPORT INFORMATION
  Report Type: Spontaneous
  Country: US (occurrence: None)
  Receive Date: 20140109
  Receipt Date: 20140109
  Transmission Date: 20141002
  Serious: Yes (Life-Threatening, Hospitalization)
  Sender: FDA-Public Use
  Company Number: None

PATIENT
  Age: 54 Year
  Sex: Male
  Weight: 70.31 kg

DRUGS (2)
  1. PREVACID [Suspect]
     Route: 048
  2. MULTIVITAMIN [Concomitant]

REACTIONS (7)
  - Hyponatraemia [None]
  - Fatigue [None]
  - Myalgia [None]
  - Asthenia [None]
  - Memory impairment [None]
  - Iron deficiency [None]
  - Vitamin D deficiency [None]
